FAERS Safety Report 13767675 (Version 3)
Quarter: 2017Q3

REPORT INFORMATION
  Report Type: Spontaneous
  Country: FR (occurrence: FR)
  Receive Date: 20170719
  Receipt Date: 20170811
  Transmission Date: 20171127
  Serious: Yes (Hospitalization)
  Sender: FDA-Public Use
  Company Number: FR-PFIZER INC-2017304083

PATIENT
  Age: 81 Year
  Sex: Female

DRUGS (8)
  1. CONTRAMAL [Suspect]
     Active Substance: TRAMADOL HYDROCHLORIDE
     Indication: PAIN
     Dosage: 100 MG, AS NEEDED, 2DF MAXIMUM DAILY
     Route: 042
     Dates: start: 20170523, end: 20170526
  2. INEXIUM [Suspect]
     Active Substance: ESOMEPRAZOLE
     Indication: PEPTIC ULCER
     Dosage: 40 MG, 1X/DAY, IN THE EVENING
     Dates: start: 20170612, end: 20170620
  3. VANCOMYCIN MYLAN [Suspect]
     Active Substance: VANCOMYCIN
     Indication: DEVICE RELATED INFECTION
     Dosage: 2 G, 1X/DAY
     Route: 042
     Dates: start: 20170518, end: 20170622
  4. GENTAMICIN. [Concomitant]
     Active Substance: GENTAMICIN
     Dosage: 240 MG, DAILY
     Dates: start: 20170518
  5. GENTAMICIN. [Concomitant]
     Active Substance: GENTAMICIN
     Dosage: UNK
     Dates: start: 20170523
  6. AMLOR [Suspect]
     Active Substance: AMLODIPINE BESYLATE
     Indication: HYPERTENSION
     Dosage: 1 DF, DAILY (IN THE MORNING)
     Route: 048
     Dates: start: 20170612, end: 20170620
  7. CLAFORAN [Suspect]
     Active Substance: CEFOTAXIME SODIUM
     Indication: DEVICE RELATED INFECTION
     Dosage: 2 G, 3X/DAY
     Route: 042
     Dates: start: 20170526, end: 20170622
  8. TOPALGIC (TRAMADOL HYDROCHLORIDE) [Suspect]
     Active Substance: TRAMADOL HYDROCHLORIDE
     Indication: PAIN
     Dosage: 2 DF, AS NEEDED MAXIMUM 4 DOSAGE FORMS DAILY
     Route: 048
     Dates: start: 20170529, end: 20170614

REACTIONS (11)
  - Acute kidney injury [Recovering/Resolving]
  - Hepatic enzyme increased [Recovering/Resolving]
  - Drug-induced liver injury [None]
  - Catheter site haematoma [None]
  - Hyperkalaemia [None]
  - Cholestasis [None]
  - Haemodialysis [None]
  - Renal tubular necrosis [None]
  - Metabolic acidosis [None]
  - Myeloma cast nephropathy [None]
  - Hepatocellular injury [None]

NARRATIVE: CASE EVENT DATE: 20170610
